FAERS Safety Report 4527528-8 (Version None)
Quarter: 2004Q4

REPORT INFORMATION
  Report Type: 
  Country: None (occurrence: None)
  Receive Date: 20041123
  Receipt Date: 20040624
  Transmission Date: 20050328
  Serious: Yes (Other)
  Sender: FDA-Public Use
  Company Number: 2004043303

PATIENT
  Sex: Female

DRUGS (16)
  1. LIPITOR [Suspect]
     Indication: LIPIDS
     Dosage: 1 IN 1 D, ORAL
     Route: 048
     Dates: start: 20021012
  2. RIZATRIPTAN BENZOATE (RIZATRIPTAN BENZOATE) [Concomitant]
  3. PENTOSAN POLYSULFATE SODIUM (PENTOSAN POLYSULFATE SODIUM) [Concomitant]
  4. OXYCODONE HYDROCHLORIDE AND ACETAMINOPHEN [Concomitant]
  5. RALOXIFENE HCL [Concomitant]
  6. DIAZEPAM [Concomitant]
  7. LEVOTHYROXINE SODIUM [Concomitant]
  8. SPIRONOLACTONE [Concomitant]
  9. CARISOPRODOL [Concomitant]
  10. ANTIBIOTICS (ANTIBIOTICS) [Concomitant]
  11. NYSTATIN [Concomitant]
  12. VALDECOXIB [Concomitant]
  13. MYCOLOG (GRAMICIDIN, NEOMYCIN SULFATE, NYSTATIN, TRIAMCINOLONE ACETONI [Concomitant]
  14. ESTRADIOL [Concomitant]
  15. FLUCONAZOLE [Concomitant]
  16. LEVOFLOXACIN [Concomitant]

REACTIONS (1)
  - DEAFNESS [None]
